FAERS Safety Report 7079938-5 (Version None)
Quarter: 2010Q4

REPORT INFORMATION
  Report Type: 
  Country: None (occurrence: None)
  Receive Date: 20101102
  Receipt Date: 20100927
  Transmission Date: 20110411
  Serious: Yes (Other)
  Sender: FDA-Public Use
  Company Number: US-PFIZER INC-2010137932

PATIENT
  Sex: Female

DRUGS (9)
  1. VISTARIL [Suspect]
     Indication: MIGRAINE
     Dosage: 25 MG, UNK
     Route: 048
     Dates: start: 20090101
  2. VISTARIL [Suspect]
     Indication: HEADACHE
  3. XYREM [Suspect]
     Indication: NARCOLEPSY
     Dosage: 2.25 G, 2X/DAY
     Route: 048
     Dates: start: 20100720
  4. XYREM [Suspect]
     Indication: CATAPLEXY
  5. NORGESIC [Suspect]
     Indication: HEADACHE
     Dosage: UNK
     Dates: start: 20090101
  6. NORGESIC [Suspect]
     Indication: MIGRAINE
  7. NARATRIPTAN [Concomitant]
     Indication: HEADACHE
  8. DICLOFENAC POTASSIUM [Concomitant]
     Indication: HEADACHE
  9. DICLOFENAC SODIUM [Concomitant]
     Indication: HEADACHE

REACTIONS (8)
  - CONFUSIONAL STATE [None]
  - DISORIENTATION [None]
  - DIZZINESS [None]
  - FEELING HOT [None]
  - HEAT EXHAUSTION [None]
  - NAUSEA [None]
  - TREMOR [None]
  - VERTIGO [None]
